FAERS Safety Report 4573583-9 (Version None)
Quarter: 2005Q1

REPORT INFORMATION
  Report Type: 
  Country: None (occurrence: None)
  Receive Date: 20050208
  Receipt Date: 20040921
  Transmission Date: 20050727
  Serious: No
  Sender: FDA-Public Use
  Company Number: US-GLAXOSMITHKLINE-A0526690A

PATIENT
  Age: 47 Year
  Sex: Female
  Weight: 61.8 kg

DRUGS (3)
  1. PAXIL [Suspect]
     Dosage: 20MG PER DAY
     Route: 048
     Dates: start: 19980101
  2. MULTI-VITAMIN [Concomitant]
  3. CLARINEX [Concomitant]

REACTIONS (2)
  - NIGHT SWEATS [None]
  - OVARIAN CYST [None]
